FAERS Safety Report 16210122 (Version 1)
Quarter: 2019Q2

REPORT INFORMATION
  Report Type: Report from Study
  Country: CA (occurrence: CA)
  Receive Date: 20190417
  Receipt Date: 20190417
  Transmission Date: 20190711
  Serious: Yes (Other)
  Sender: FDA-Public Use
  Company Number: CA-BEH-2019101395

PATIENT
  Sex: Female

DRUGS (8)
  1. PREVACID [Concomitant]
     Active Substance: LANSOPRAZOLE
  2. SYNTHROID [Concomitant]
     Active Substance: LEVOTHYROXINE SODIUM
  3. HIZENTRA [Suspect]
     Active Substance: HUMAN IMMUNOGLOBULIN G
     Indication: SELECTIVE IGG SUBCLASS DEFICIENCY
  4. WELLBUTRIN [Concomitant]
     Active Substance: BUPROPION HYDROCHLORIDE
  5. HIZENTRA [Suspect]
     Active Substance: HUMAN IMMUNOGLOBULIN G
     Indication: PRIMARY IMMUNODEFICIENCY SYNDROME
     Dosage: 10 G, QW
     Route: 058
     Dates: start: 20180529, end: 201810
  6. CRESTOR [Concomitant]
     Active Substance: ROSUVASTATIN CALCIUM
  7. AVALIDE [Concomitant]
     Active Substance: HYDROCHLOROTHIAZIDE\IRBESARTAN
  8. AXERT [Concomitant]
     Active Substance: ALMOTRIPTAN MALATE

REACTIONS (10)
  - Blood immunoglobulin G decreased [Unknown]
  - Palpitations [Unknown]
  - Headache [Recovering/Resolving]
  - Fluid retention [Unknown]
  - Fluid retention [Unknown]
  - Anuria [Unknown]
  - Palpitations [Unknown]
  - Urine output decreased [Unknown]
  - Dyspnoea exertional [Unknown]
  - Malaise [Unknown]

NARRATIVE: CASE EVENT DATE: 2018
